FAERS Safety Report 19498524 (Version 1)
Quarter: 2021Q3

REPORT INFORMATION
  Report Type: Report from Study
  Country: None (occurrence: AU)
  Receive Date: 20210706
  Receipt Date: 20210706
  Transmission Date: 20211014
  Serious: Yes (Other)
  Sender: FDA-Public Use
  Company Number: AU-MDD US OPERATIONS-MDD202106-001258

PATIENT
  Age: 78 Year
  Sex: Male

DRUGS (1)
  1. APOMORPHINE HYDROCHLORIDE [Suspect]
     Active Substance: APOMORPHINE HYDROCHLORIDE
     Indication: PRODUCT USED FOR UNKNOWN INDICATION
     Dosage: NOT PROVIDED

REACTIONS (3)
  - Infusion site infection [Recovered/Resolved]
  - Infusion site nodule [Recovered/Resolved]
  - Surgery [Recovered/Resolved]
